FAERS Safety Report 24707207 (Version 2)
Quarter: 2024Q4

REPORT INFORMATION
  Report Type: Other
  Country: IN (occurrence: IN)
  Receive Date: 20241206
  Receipt Date: 20241219
  Transmission Date: 20250114
  Serious: Yes (Hospitalization)
  Sender: ALVOGEN
  Company Number: IN-ALVOGEN-2024095887

PATIENT
  Age: 45 Year
  Sex: Male

DRUGS (3)
  1. DISULFIRAM [Suspect]
     Active Substance: DISULFIRAM
     Indication: Alcohol use disorder
     Dosage: USED IN IMPLANT
  2. DISULFIRAM [Suspect]
     Active Substance: DISULFIRAM
     Indication: Alcohol use disorder
     Dosage: CONSUMED HEFTY DOSE (AN ESTIMATED 10 TABLETS BEING GIVEN OVER 96 HOURS) AFTER CONSUMING ALCOHOL
  3. ALCOHOL [Suspect]
     Active Substance: ALCOHOL
     Indication: Alcohol use
     Dosage: CONSUMED TWICE (ABOUT 30 UNITS OF ALCOHOL COMBINED) OVER TWO DAYS.

REACTIONS (7)
  - Toxic encephalopathy [Recovering/Resolving]
  - Neurotoxicity [Unknown]
  - Fibrosis [Unknown]
  - Labelled drug-food interaction issue [Unknown]
  - Product communication issue [Unknown]
  - Incorrect dose administered [Unknown]
  - Off label use [Unknown]
